FAERS Safety Report 10791172 (Version 1)
Quarter: 2015Q1

REPORT INFORMATION
  Report Type: Spontaneous
  Country: PL (occurrence: PL)
  Receive Date: 20150212
  Receipt Date: 20150212
  Transmission Date: 20150721
  Serious: Yes (Hospitalization)
  Sender: FDA-Public Use
  Company Number: PL-MYLANLABS-2015M1004222

PATIENT

DRUGS (3)
  1. OPIPRAMOL [Suspect]
     Active Substance: OPIPRAMOL
     Route: 042
  2. TRAMADOL [Suspect]
     Active Substance: TRAMADOL
     Route: 042
  3. CLONAZEPAM. [Suspect]
     Active Substance: CLONAZEPAM
     Route: 042

REACTIONS (5)
  - Soft tissue infection [Unknown]
  - Drug abuse [Unknown]
  - Weight decreased [Unknown]
  - Serotonin syndrome [Unknown]
  - Skin infection [Unknown]
